FAERS Safety Report 5594262-5 (Version None)
Quarter: 2008Q1

REPORT INFORMATION
  Report Type: 
  Country: None (occurrence: None)
  Receive Date: 20080117
  Receipt Date: 20080114
  Transmission Date: 20080703
  Serious: Yes (Congenital Anomaly)
  Sender: FDA-Public Use
  Company Number: GB-BRISTOL-MYERS SQUIBB COMPANY-14040174

PATIENT
  Age: 5 Month
  Sex: Female
  Weight: 3 kg

DRUGS (3)
  1. ACETAMINOPHEN [Suspect]
     Indication: ANALGESIA
     Route: 064
     Dates: start: 20070111, end: 20070115
  2. AMOXICILLIN [Suspect]
     Indication: URINARY TRACT INFECTION
     Route: 064
     Dates: start: 20070320, end: 20070327
  3. MALARONE [Suspect]
     Indication: MALARIA PROPHYLAXIS
     Dosage: 1 DOSAGE FORM:1 TABLET
     Route: 064
     Dates: start: 20060909, end: 20061204

REACTIONS (2)
  - PREGNANCY [None]
  - VENTRICULAR SEPTAL DEFECT [None]
